FAERS Safety Report 4367677-0 (Version None)
Quarter: 2004Q2

REPORT INFORMATION
  Report Type: 
  Country: None (occurrence: None)
  Receive Date: 20040601
  Receipt Date: 20040518
  Transmission Date: 20050107
  Serious: Yes (Hospitalization)
  Sender: FDA-Public Use
  Company Number: DE-GLAXOSMITHKLINE-B0333211A

PATIENT
  Age: 59 Year
  Sex: Female
  Weight: 85.6 kg

DRUGS (5)
  1. AVANDAMET [Suspect]
     Route: 048
     Dates: start: 20040323
  2. RANITIDINE [Concomitant]
     Indication: ULCER
     Dosage: 150MG TWICE PER DAY
     Route: 048
  3. MOTENS [Concomitant]
     Indication: HYPERTENSION
     Dosage: 4MG PER DAY
     Route: 048
     Dates: start: 20010101
  4. FRISIUM [Concomitant]
     Indication: PANIC ATTACK
     Dosage: 10MG PER DAY
     Route: 048
     Dates: start: 19940101
  5. LOCOL [Concomitant]
     Dosage: 80MG PER DAY
     Route: 048

REACTIONS (1)
  - GASTROINTESTINAL HAEMORRHAGE [None]
